FAERS Safety Report 5432032-9 (Version None)
Quarter: 2007Q3

REPORT INFORMATION
  Report Type: 
  Country: None (occurrence: None)
  Receive Date: 20070830
  Receipt Date: 20070814
  Transmission Date: 20080115
  Serious: No
  Sender: FDA-Public Use
  Company Number: US-BOEHRINGER INGELHEIM PHARMACEUTICALS, INC.-2007-BP-19195BP

PATIENT
  Sex: Female

DRUGS (4)
  1. MOBIC [Suspect]
     Indication: OSTEOARTHRITIS
     Route: 048
     Dates: start: 20070401
  2. MESTINON [Concomitant]
  3. LIPITOR [Concomitant]
  4. ASPIRIN [Concomitant]

REACTIONS (2)
  - ALOPECIA [None]
  - VISION BLURRED [None]
